FAERS Safety Report 6181575-1 (Version None)
Quarter: 2009Q2

REPORT INFORMATION
  Report Type: 
  Country: None (occurrence: None)
  Receive Date: 20090501
  Receipt Date: 20090421
  Transmission Date: 20091009
  Serious: Yes (Hospitalization, Other)
  Sender: FDA-Public Use
  Company Number: 2009-00268

PATIENT
  Age: 49 Year
  Sex: Male
  Weight: 89.8 kg

DRUGS (1)
  1. VELCADE [Suspect]
     Indication: MULTIPLE MYELOMA
     Dosage: 2.7 MG, INTRAVENOUS
     Route: 042
     Dates: start: 20090116

REACTIONS (5)
  - DIPLOPIA [None]
  - HEADACHE [None]
  - MUSCULAR WEAKNESS [None]
  - PARAESTHESIA [None]
  - VITH NERVE PARALYSIS [None]
